APPROVED DRUG PRODUCT: PYLARIFY
Active Ingredient: PIFLUFOLASTAT F-18
Strength: 50ML (1-80mCi/ML)
Dosage Form/Route: SOLUTION;INTRAVENOUS
Application: N214793 | Product #001
Applicant: PROGENICS PHARMACEUTICALS INC
Approved: May 26, 2021 | RLD: Yes | RS: Yes | Type: RX

PATENTS:
Patent 8778305 | Expires: Sep 21, 2030
Patent 9861713 | Expires: Jul 31, 2029
Patent 10947197 | Expires: Jun 9, 2037
Patent 11851407 | Expires: Jun 9, 2037
Patent 12070513 | Expires: Jul 31, 2029
Patent 8487129 | Expires: Nov 7, 2027

EXCLUSIVITY:
Code: NCE | Date: May 26, 2026